FAERS Safety Report 7201524-4 (Version None)
Quarter: 2010Q4

REPORT INFORMATION
  Report Type: 
  Country: None (occurrence: None)
  Receive Date: 20101216
  Receipt Date: 20101210
  Transmission Date: 20110411
  Serious: Yes (Death)
  Sender: FDA-Public Use
  Company Number: DSA_44495_2010

PATIENT
  Sex: Male

DRUGS (1)
  1. XENAZINE [Suspect]
     Indication: PRODUCT USED FOR UNKNOWN INDICATION
     Dosage: HALF OF A 25 MG TABLET TID, AMD ONE TABLET AT NIGHT (62.5 MG DAILY) ORAL)
     Route: 048

REACTIONS (1)
  - DEATH [None]
